FAERS Safety Report 4974341-3 (Version None)
Quarter: 2006Q2

REPORT INFORMATION
  Report Type: 
  Country: None (occurrence: None)
  Receive Date: 20060417
  Receipt Date: 20060406
  Transmission Date: 20061013
  Serious: Yes (Death, Life-Threatening, Other)
  Sender: FDA-Public Use
  Company Number: LB-MERCK-0604USA00937

PATIENT
  Age: 85 Year
  Sex: Female

DRUGS (6)
  1. PRIMAXIN [Suspect]
     Indication: SEPSIS
     Route: 042
     Dates: start: 20060101, end: 20060330
  2. HEPARIN [Suspect]
     Route: 065
  3. DIFLUCAN [Concomitant]
     Route: 065
  4. TARGOCID [Concomitant]
     Route: 065
  5. AMINOPLASMAL [Concomitant]
     Route: 065
  6. [THERAPY UNSPECIFIED] [Concomitant]
     Route: 065

REACTIONS (4)
  - GENERAL SYMPTOM [None]
  - PULMONARY OEDEMA [None]
  - RENAL FAILURE [None]
  - THROMBOCYTOPENIA [None]
